FAERS Safety Report 5759567-3 (Version None)
Quarter: 2008Q2

REPORT INFORMATION
  Report Type: 
  Country: None (occurrence: None)
  Receive Date: 20080605
  Receipt Date: 20080530
  Transmission Date: 20081010
  Serious: Yes (Other)
  Sender: FDA-Public Use
  Company Number: US-ASTRAZENECA-2008UW11033

PATIENT
  Sex: Male

DRUGS (1)
  1. PLENDIL [Suspect]
     Route: 048

REACTIONS (3)
  - ABNORMAL DREAMS [None]
  - HYPERSEXUALITY [None]
  - THINKING ABNORMAL [None]
